FAERS Safety Report 16051239 (Version 1)
Quarter: 2019Q1

REPORT INFORMATION
  Report Type: Spontaneous
  Country: US (occurrence: US)
  Receive Date: 20190208
  Receipt Date: 20190208
  Transmission Date: 20190418
  Serious: Yes (Other)
  Sender: FDA-Public Use
  Company Number: None

PATIENT
  Age: 68 Year
  Sex: Female
  Weight: 63.5 kg

DRUGS (2)
  1. CARBAMAZEPINE 200MG [Suspect]
     Active Substance: CARBAMAZEPINE
     Dosage: ?          OTHER FREQUENCY:2 PM;?
     Route: 048
  2. CARBAMAZEPINE 200MG [Suspect]
     Active Substance: CARBAMAZEPINE
     Indication: TRIGEMINAL NEURALGIA
     Dosage: ?          OTHER FREQUENCY:1 AM;?
     Route: 048

REACTIONS (8)
  - Chills [None]
  - Product substitution issue [None]
  - Breakthrough pain [None]
  - Lethargy [None]
  - Weight increased [None]
  - Eating disorder [None]
  - Inadequate analgesia [None]
  - Aphasia [None]

NARRATIVE: CASE EVENT DATE: 20181228
